FAERS Safety Report 4337786-0 (Version None)
Quarter: 2004Q2

REPORT INFORMATION
  Report Type: 
  Country: None (occurrence: None)
  Receive Date: 20040408
  Receipt Date: 20040330
  Transmission Date: 20050107
  Serious: Yes (Hospitalization)
  Sender: FDA-Public Use
  Company Number: 2004AP02047

PATIENT
  Age: 66 Year
  Sex: Female
  Weight: 58 kg

DRUGS (6)
  1. ARIMIDEX [Suspect]
     Indication: BREAST CANCER
     Dosage: 1 MG DAILY PO
     Route: 048
     Dates: start: 20030520, end: 20030614
  2. ALTAT [Concomitant]
  3. MARZULENE [Concomitant]
  4. ASPIRIN [Concomitant]
  5. LASIX /SCH/ [Concomitant]
  6. CYANOCOBALAMIN [Concomitant]

REACTIONS (3)
  - DYSPNOEA [None]
  - EOSINOPHIL PERCENTAGE INCREASED [None]
  - LUNG DISORDER [None]
